FAERS Safety Report 9939770 (Version 1)
Quarter: 2014Q1

REPORT INFORMATION
  Report Type: Report from Study
  Country: US (occurrence: US)
  Receive Date: 20140303
  Receipt Date: 20140303
  Transmission Date: 20141002
  Serious: No
  Sender: FDA-Public Use
  Company Number: US-ABBVIE-13P-163-1033355-00

PATIENT
  Age: 41 Year
  Sex: Female
  Weight: 85.81 kg

DRUGS (6)
  1. HUMIRA [Suspect]
     Indication: RHEUMATOID ARTHRITIS
     Dates: start: 201208
  2. METHOTREXATE [Concomitant]
     Indication: RHEUMATOID ARTHRITIS
  3. FOLIC ACID [Concomitant]
     Indication: POLYMEDICATION
  4. PREDNISONE [Concomitant]
     Indication: RHEUMATOID ARTHRITIS
  5. ISONIAZIDE [Concomitant]
     Indication: TUBERCULIN TEST POSITIVE
     Dates: start: 201204, end: 201210
  6. RIFAMPIN [Concomitant]
     Indication: TUBERCULIN TEST POSITIVE
     Dates: start: 201204, end: 201210

REACTIONS (1)
  - Nasopharyngitis [Not Recovered/Not Resolved]
